FAERS Safety Report 6188477-5 (Version None)
Quarter: 2009Q2

REPORT INFORMATION
  Report Type: 
  Country: None (occurrence: None)
  Receive Date: 20090511
  Receipt Date: 20090309
  Transmission Date: 20091009
  Serious: No
  Sender: FDA-Public Use
  Company Number: FR-2009-0525

PATIENT
  Sex: Male

DRUGS (1)
  1. NAVELBINE (VINORELBINE TARTRATE) UNKNOWN [Suspect]
     Dates: start: 20071203

REACTIONS (1)
  - TOOTH DISORDER [None]
